FAERS Safety Report 7524847-8 (Version None)
Quarter: 2011Q2

REPORT INFORMATION
  Report Type: 
  Country: None (occurrence: None)
  Receive Date: 20110606
  Receipt Date: 20110601
  Transmission Date: 20111010
  Serious: No
  Sender: FDA-Public Use
  Company Number: US-PFIZER INC-2011119647

PATIENT
  Sex: Female
  Weight: 96 kg

DRUGS (5)
  1. SYNTHROID [Concomitant]
     Indication: HYPOTHYROIDISM
     Dosage: 112 UG, DAILY
  2. ADVIL [Suspect]
     Indication: PAIN
     Dosage: UNK
  3. ATENOLOL [Concomitant]
     Indication: HYPERTENSION
     Dosage: 50 MG, DAILY
  4. TRICOR [Concomitant]
     Indication: BLOOD TRIGLYCERIDES INCREASED
     Dosage: 145 MG, DAILY
  5. HYZAAR [Concomitant]
     Indication: HYPERTENSION
     Dosage: 250/12.5 MG, DAILY

REACTIONS (5)
  - RASH PRURITIC [None]
  - RASH [None]
  - LIMB INJURY [None]
  - FALL [None]
  - ROAD TRAFFIC ACCIDENT [None]
